APPROVED DRUG PRODUCT: QDOLO
Active Ingredient: TRAMADOL HYDROCHLORIDE
Strength: 5MG/ML
Dosage Form/Route: SOLUTION;ORAL
Application: N214044 | Product #001
Applicant: ATHENA BIOSCIENCE LLC
Approved: Sep 1, 2020 | RLD: Yes | RS: No | Type: DISCN

PATENTS:
Patent 11103452 | Expires: Sep 1, 2040
Patent 11752103 | Expires: Sep 1, 2040